FAERS Safety Report 16785970 (Version 1)
Quarter: 2019Q3

REPORT INFORMATION
  Report Type: Spontaneous
  Country: US (occurrence: US)
  Receive Date: 20190909
  Receipt Date: 20190909
  Transmission Date: 20191005
  Serious: Yes (Hospitalization, Other)
  Sender: FDA-Public Use
  Company Number: US-RECKITT BENCKISER HEALTHCARE INT LIMITED-RB-89559-2019

PATIENT
  Age: 17 Year
  Sex: Male

DRUGS (1)
  1. MUCINEX DM [Suspect]
     Active Substance: DEXTROMETHORPHAN HYDROBROMIDE\GUAIFENESIN
     Indication: DRUG ABUSE
     Dosage: TOOK TWO 20 COUNT BOXES AT AN UNKNOWN FREQUENCY
     Route: 048

REACTIONS (11)
  - Intentional overdose [Recovered/Resolved]
  - Product use in unapproved indication [Recovered/Resolved]
  - Gait disturbance [Recovered/Resolved]
  - Drug abuse [Recovered/Resolved]
  - Ureteric obstruction [Recovered/Resolved]
  - Acute kidney injury [Recovered/Resolved]
  - Ureterolithiasis [Recovered/Resolved]
  - Abdominal pain lower [Recovered/Resolved]
  - Urosepsis [Recovered/Resolved]
  - Tremor [Recovered/Resolved]
  - Hydronephrosis [Recovered/Resolved]
